FAERS Safety Report 8505719-9 (Version None)
Quarter: 2012Q3

REPORT INFORMATION
  Report Type: 
  Country: None (occurrence: None)
  Receive Date: 20120712
  Receipt Date: 20120703
  Transmission Date: 20120928
  Serious: Yes (Hospitalization, Other)
  Sender: FDA-Public Use
  Company Number: JP-VERTEX PHARMACEUTICALS INC.-AE-2012-009616

PATIENT
  Age: 61 Year
  Sex: Female

DRUGS (14)
  1. TELAVIC (TELAPREVIR) [Suspect]
     Indication: HEPATITIS C
     Route: 048
     Dates: start: 20120411
  2. RIBAVIRIN [Concomitant]
     Route: 048
     Dates: start: 20120523
  3. RIBAVIRIN [Concomitant]
     Route: 048
     Dates: start: 20120530, end: 20120605
  4. ROCHEPIN [Concomitant]
     Indication: ADVERSE EVENT
     Dates: start: 20120529, end: 20120604
  5. TELAVIC (TELAPREVIR) [Suspect]
     Route: 048
     Dates: start: 20120530, end: 20120605
  6. TELAVIC (TELAPREVIR) [Suspect]
     Route: 048
     Dates: start: 20120613
  7. RIBAVIRIN [Concomitant]
     Route: 048
     Dates: start: 20120627
  8. PEGINTERFERON ALFA-2B [Concomitant]
     Dates: start: 20120613
  9. PEGINTERFERON ALFA-2B [Concomitant]
     Dates: start: 20120530, end: 20120605
  10. ALLEGRA [Concomitant]
     Route: 048
  11. PEGINTERFERON ALFA-2B [Concomitant]
     Indication: HEPATITIS C
     Dates: start: 20120411
  12. CANDESARTAN CILEXETIL [Concomitant]
     Route: 048
  13. NORVASC [Concomitant]
     Route: 048
  14. RIBAVIRIN [Concomitant]
     Indication: HEPATITIS C
     Route: 048
     Dates: start: 20120411, end: 20120522

REACTIONS (2)
  - PYELONEPHRITIS ACUTE [None]
  - HAEMOGLOBIN DECREASED [None]
